FAERS Safety Report 4771502-3 (Version None)
Quarter: 2005Q3

REPORT INFORMATION
  Report Type: 
  Country: None (occurrence: None)
  Receive Date: 20050914
  Receipt Date: 20050914
  Transmission Date: 20060218
  Serious: Yes (Other)
  Sender: FDA-Public Use
  Company Number: None

PATIENT
  Sex: Female

DRUGS (1)
  1. EFFEXOR XR [Suspect]
     Indication: MAJOR DEPRESSION
     Dosage: HAS BEEN ON VARYING DOSES SINCE SEPTER 1999
     Dates: start: 19990901

REACTIONS (1)
  - OSTEOPOROSIS [None]
